FAERS Safety Report 5334759-6 (Version None)
Quarter: 2007Q2

REPORT INFORMATION
  Report Type: 
  Country: None (occurrence: None)
  Receive Date: 20070308
  Receipt Date: 20061103
  Transmission Date: 20071010
  Serious: No
  Sender: FDA-Public Use
  Company Number: 2006-BP-10150BP

PATIENT
  Age: 82 Year
  Sex: Female

DRUGS (11)
  1. SPIRIVA [Suspect]
     Indication: CHRONIC OBSTRUCTIVE PULMONARY DISEASE
     Dosage: 18 MCG (18 MCG, 1 IN 1 D), IH
     Route: 055
     Dates: start: 20060801, end: 20060801
  2. SPIRIVA [Suspect]
     Indication: DYSPNOEA
     Dosage: 18 MCG (18 MCG, 1 IN 1 D), IH
     Route: 055
     Dates: start: 20060801, end: 20060801
  3. SPIRIVA [Suspect]
  4. TOPROL-XL [Concomitant]
  5. HTN MED (ANTIHYPERTENSIVES) [Concomitant]
  6. COZAAR [Concomitant]
  7. NORVASC [Concomitant]
  8. PROTONIX [Concomitant]
  9. CALTRATE (CALCIUM CARBONATE) [Concomitant]
  10. ACTONEL [Concomitant]
  11. WARFARIN SODIUM [Concomitant]

REACTIONS (1)
  - DRUG INEFFECTIVE [None]
